FAERS Safety Report 9067766 (Version 7)
Quarter: 2014Q1

REPORT INFORMATION
  Report Type: Spontaneous
  Country: US (occurrence: US)
  Receive Date: 20130206
  Receipt Date: 20140213
  Transmission Date: 20141002
  Serious: Yes (Other)
  Sender: FDA-Public Use
  Company Number: PHEH2013US002902

PATIENT
  Sex: Male

DRUGS (3)
  1. RITALIN [Suspect]
     Dosage: UNK UKN, UNK
  2. LITHIUM CARBONATE [Concomitant]
     Dosage: UNK UKN, UNK
     Dates: start: 20120827
  3. BENADRYL                           /00647601/ [Concomitant]
     Dosage: UNK UKN, UNK
     Dates: start: 20120827

REACTIONS (6)
  - Nervous system disorder [Unknown]
  - Eye disorder [Unknown]
  - Bipolar disorder [Not Recovered/Not Resolved]
  - Anxiety [Unknown]
  - Learning disorder [Unknown]
  - Increased appetite [Unknown]
